FAERS Safety Report 5066429-6 (Version None)
Quarter: 2006Q3

REPORT INFORMATION
  Report Type: 
  Country: None (occurrence: None)
  Receive Date: 20060717
  Receipt Date: 20050607
  Transmission Date: 20061208
  Serious: Yes (Other)
  Sender: FDA-Public Use
  Company Number: SGB1-2005-00235

PATIENT
  Age: 60 Year
  Sex: Male

DRUGS (3)
  1. XAGRID UNK (ANAGRELIDE HYDROCHLORIDE) CAPSULE [Suspect]
     Indication: ESSENTIAL THROMBOCYTHAEMIA
     Dosage: 0.5 MG, 3X/DAY:TID
     Dates: start: 20050101, end: 20050523
  2. ASPIRIN [Concomitant]
  3. LIPANTYL [Concomitant]

REACTIONS (1)
  - RENAL FAILURE ACUTE [None]
